FAERS Safety Report 8421732-4 (Version None)
Quarter: 2012Q2

REPORT INFORMATION
  Report Type: 
  Country: None (occurrence: None)
  Receive Date: 20120608
  Receipt Date: 20120528
  Transmission Date: 20120825
  Serious: Yes (Hospitalization)
  Sender: FDA-Public Use
  Company Number: CN-PFIZER INC-2012134979

PATIENT

DRUGS (8)
  1. ASPIRIN [Concomitant]
     Dosage: 100 MG, UNK
  2. TIROFIBAN [Concomitant]
     Dosage: 0.4 MCG/KG.MIN, FOR 30 MINUTES
     Route: 041
  3. ENOXAPARIN [Concomitant]
     Dosage: 1 MG/KG, 2X/DAY
  4. PANTOPRAZOLE [Suspect]
     Indication: PROPHYLAXIS
     Dosage: 40 MG, DAILY
     Route: 058
  5. ENOXAPARIN [Concomitant]
     Dosage: 40 MG, 2X/DAY
  6. CLOPIDOGREL [Concomitant]
     Dosage: 75 MG, UNK
  7. TIROFIBAN [Concomitant]
     Dosage: 0.1 MCG/KG.MIN
     Route: 041
  8. PANTOPRAZOLE [Suspect]
     Dosage: 40 MG, 2X/DAY
     Route: 048

REACTIONS (1)
  - ANGINA PECTORIS [None]
